FAERS Safety Report 8086782 (Version 4)
Quarter: 2012Q4

REPORT INFORMATION
  Report Type: Spontaneous
  Country: US (occurrence: None)
  Receive Date: 20110728
  Receipt Date: 20120810
  Transmission Date: 20130627
  Serious: Yes (Other)
  Sender: FDA-Public Use
  Company Number: 2011027859

PATIENT
  Age: 61 Year
  Sex: Female
  Weight: 88.45 kg

DRUGS (39)
  1. HIZENTRA [Suspect]
     Indication: IMMUNODEFICIENCY COMMON VARIABLE
     Dosage: SEE IMAGE
     Route: 058
     Dates: start: 20110304
  2. HIZENTRA [Suspect]
     Indication: IMMUNODEFICIENCY COMMON VARIABLE
     Dosage: SEE IMAGE
     Route: 058
     Dates: start: 20120315
  3. HIZENTRA [Suspect]
     Indication: IMMUNODEFICIENCY COMMON VARIABLE
     Dosage: SEE IMAGE
     Route: 058
     Dates: start: 20110630
  4. HIZENTRA [Suspect]
     Indication: IMMUNODEFICIENCY COMMON VARIABLE
     Dosage: SEE IMAGE
     Route: 058
     Dates: start: 20110411
  5. HIZENTRA [Suspect]
     Indication: IMMUNODEFICIENCY COMMON VARIABLE
     Dosage: SEE IMAGE
     Route: 058
     Dates: start: 20110411
  6. HIZENTRA [Suspect]
     Indication: IMMUNODEFICIENCY COMMON VARIABLE
     Dosage: SEE IMAGE
     Route: 058
     Dates: start: 20110304
  7. HIZENTRA [Suspect]
     Indication: IMMUNODEFICIENCY COMMON VARIABLE
     Dosage: SEE IMAGE
     Route: 058
     Dates: start: 20120315
  8. HIZENTRA [Suspect]
  9. HIZENTRA [Suspect]
  10. HIZENTRA [Suspect]
  11. HIZENTRA [Suspect]
  12. HIZENTRA [Suspect]
  13. HIZENTRA [Suspect]
  14. ONGLYZA (DRUG USED IN DIABETES) [Concomitant]
  15. LASIX [Concomitant]
  16. FLUTICASONE PROPIONATE [Concomitant]
  17. LIPITOR [Concomitant]
  18. TRAMADOL HCL (TRAMADOL) [Concomitant]
  19. ATENOLOL [Concomitant]
  20. ISOSORBIDE (ISOSORBIDE) [Concomitant]
  21. BUPROPION HYDROCHLORIDE [Concomitant]
  22. SYMBICORT (BUDESONIDE W/FORMOTEROL FUMARATE0 [Concomitant]
  23. NEXIUM [Concomitant]
  24. KLOR-CON [Concomitant]
  25. ASPIRIN [Concomitant]
  26. SPIRIVA [Concomitant]
  27. DUONEB [Concomitant]
  28. CYMBALTA [Concomitant]
  29. PERFOROMIST (FOROMOTEROL) [Concomitant]
  30. AMARYL (GLIMEPIRIDE) [Concomitant]
  31. METFORMIN (METFORMIN) [Concomitant]
  32. CRESTOR (ROSUVASTATIN) [Concomitant]
  33. DIPHENHYDRAMINE [Concomitant]
  34. EPI-PEN (EPINEPHRINE) [Concomitant]
  35. L-M-X (LIDOCAINE) [Concomitant]
  36. KEFLEX (CEFALEXIN) [Concomitant]
  37. BYETTA (DRUG USED IN DIABETES) [Concomitant]
  38. VALACYCLOVIR (VALACICLOVIR) [Concomitant]
  39. LIDOCAINE (LIDOCAINE) [Concomitant]

REACTIONS (7)
  - Pain [None]
  - Fatigue [None]
  - Application site irritation [None]
  - Urinary tract infection [None]
  - Infusion site extravasation [None]
  - Fungal infection [None]
  - Sinusitis [None]
